FAERS Safety Report 5068651-1 (Version None)
Quarter: 2006Q3

REPORT INFORMATION
  Report Type: 
  Country: None (occurrence: None)
  Receive Date: 20060802
  Receipt Date: 20060125
  Transmission Date: 20061208
  Serious: No
  Sender: FDA-Public Use
  Company Number: US-BRISTOL-MYERS SQUIBB COMPANY-13259916

PATIENT
  Age: 83 Year
  Sex: Male

DRUGS (3)
  1. COUMADIN [Suspect]
     Indication: KNEE ARTHROPLASTY
  2. SULFA [Concomitant]
  3. HYDROCODONE [Concomitant]

REACTIONS (3)
  - AGEUSIA [None]
  - NAUSEA [None]
  - VOMITING [None]
